FAERS Safety Report 4370755-3 (Version None)
Quarter: 2004Q2

REPORT INFORMATION
  Report Type: 
  Country: None (occurrence: None)
  Receive Date: 20040525
  Receipt Date: 20040510
  Transmission Date: 20050107
  Serious: Yes (Hospitalization)
  Sender: FDA-Public Use
  Company Number: B0332366A

PATIENT
  Age: 40 Year
  Sex: Male

DRUGS (6)
  1. EPIVIR [Suspect]
     Indication: SYSTEMIC ANTIVIRAL TREATMENT
     Dates: start: 20010801
  2. STAVUDINE (FORMULATION UNKNOWN) (STAVUDINE) [Suspect]
     Indication: SYSTEMIC ANTIVIRAL TREATMENT
     Dates: start: 20010801
  3. TENOFOVIR (FORMULATION UNKNOWN) (TENOFOVIR) [Suspect]
     Indication: SYSTEMIC ANTIVIRAL TREATMENT
     Dates: start: 20010801
  4. EFAVIRENZ (FORMULATION UNKNOWN) (EFAVIRENZ) [Suspect]
     Indication: SYSTEMIC ANTIVIRAL TREATMENT
     Dates: start: 20010801
  5. T-20 (FORMULATION UNKNOWN) (T-20) [Suspect]
     Dates: start: 20010801
  6. FOSCARNET SODIUM [Suspect]
     Indication: CYTOMEGALOVIRUS CHORIORETINITIS
     Dates: start: 20011001

REACTIONS (9)
  - BRAIN ABSCESS [None]
  - BRAIN OEDEMA [None]
  - COMA [None]
  - CSF WHITE BLOOD CELL COUNT POSITIVE [None]
  - CYTOMEGALOVIRUS CHORIORETINITIS [None]
  - DRUG INEFFECTIVE [None]
  - MYCOBACTERIUM AVIUM COMPLEX INFECTION [None]
  - RED BLOOD CELLS CSF POSITIVE [None]
  - STATUS EPILEPTICUS [None]
